FAERS Safety Report 12376817 (Version 1)
Quarter: 2016Q2

REPORT INFORMATION
  Report Type: Report from Study
  Country: TW (occurrence: TW)
  Receive Date: 20160517
  Receipt Date: 20160517
  Transmission Date: 20160815
  Serious: Yes (Other)
  Sender: FDA-Public Use
  Company Number: TW-JNJFOC-20160507336

PATIENT
  Age: 55 Year
  Sex: Male
  Weight: 60 kg

DRUGS (10)
  1. DAIVOBET [Concomitant]
     Active Substance: BETAMETHASONE DIPROPIONATE\CALCIPOTRIENE
     Dosage: TAKEN EVERY DAY
     Route: 061
  2. ETORICOXIB [Concomitant]
     Active Substance: ETORICOXIB
     Dosage: TAKEN EVERY OTHER DAY
     Route: 048
  3. FOLIC ACID. [Concomitant]
     Active Substance: FOLIC ACID
     Route: 048
  4. PREDNISOLONE. [Concomitant]
     Active Substance: PREDNISOLONE
     Indication: PSORIASIS
     Route: 048
     Dates: start: 20130912
  5. METHOTREXATE [Concomitant]
     Active Substance: METHOTREXATE
     Indication: PSORIASIS
     Route: 048
     Dates: start: 20141224
  6. STELARA [Suspect]
     Active Substance: USTEKINUMAB
     Indication: PSORIASIS
     Route: 058
     Dates: start: 20140115, end: 20160310
  7. XAMIOL [Concomitant]
     Active Substance: BETAMETHASONE DIPROPIONATE\CALCIPOTRIENE HYDRATE
     Dosage: TAKEN EVERYDAY
     Route: 061
  8. EXFORGE [Concomitant]
     Active Substance: AMLODIPINE BESYLATE\VALSARTAN
     Dosage: AMLODIPINE 5MG + VALSARTAN 80 MG, TAKEN EVERYDAY
     Route: 048
  9. LEVOCETIRIZINE [Concomitant]
     Active Substance: LEVOCETIRIZINE
     Dosage: TAKEN EVERYDAY
     Route: 048
  10. TAMSULOSIN HCL [Concomitant]
     Active Substance: TAMSULOSIN
     Dosage: TAKEN AT BED TIME
     Route: 048

REACTIONS (1)
  - Mycobacterium tuberculosis complex test positive [Not Recovered/Not Resolved]

NARRATIVE: CASE EVENT DATE: 20160421
